FAERS Safety Report 5582602-2 (Version None)
Quarter: 2008Q1

REPORT INFORMATION
  Report Type: 
  Country: None (occurrence: None)
  Receive Date: 20080107
  Receipt Date: 20071219
  Transmission Date: 20080703
  Serious: No
  Sender: FDA-Public Use
  Company Number: US-BAYER-200716939NA

PATIENT
  Age: 39 Year
  Sex: Female
  Weight: 79 kg

DRUGS (1)
  1. YAZ [Suspect]
     Indication: CONTRACEPTION
     Route: 048
     Dates: start: 20070701, end: 20071218

REACTIONS (2)
  - HYPOAESTHESIA [None]
  - HYPOAESTHESIA FACIAL [None]
